FAERS Safety Report 7918371-8 (Version None)
Quarter: 2011Q4

REPORT INFORMATION
  Report Type: 
  Country: None (occurrence: None)
  Receive Date: 20111114
  Receipt Date: 20111102
  Transmission Date: 20120403
  Serious: Yes (Other)
  Sender: FDA-Public Use
  Company Number: 1103899

PATIENT
  Age: 81 Year
  Sex: Female

DRUGS (2)
  1. FENTANYL CITRATE [Concomitant]
  2. KETAMINE HCL [Suspect]
     Indication: WRIST FRACTURE
     Dosage: 30 MG MILLIGRAM(S)

REACTIONS (1)
  - TRISMUS [None]
